FAERS Safety Report 21545761 (Version 8)
Quarter: 2023Q2

REPORT INFORMATION
  Report Type: Report from Study
  Country: US (occurrence: US)
  Receive Date: 20221103
  Receipt Date: 20230523
  Transmission Date: 20230721
  Serious: Yes (Hospitalization)
  Sender: FDA-Public Use
  Company Number: US-002147023-NVSC2022US244978

PATIENT
  Sex: Female
  Weight: 70.748 kg

DRUGS (7)
  1. TREPROSTINIL [Suspect]
     Active Substance: TREPROSTINIL
     Indication: Pulmonary arterial hypertension
     Dosage: 99.5 NG/KG/MIN, CONT
     Route: 042
     Dates: start: 20221025
  2. TREPROSTINIL [Suspect]
     Active Substance: TREPROSTINIL
     Dosage: 99.5 NG/KG/MIN, CONT
     Route: 042
  3. TREPROSTINIL [Suspect]
     Active Substance: TREPROSTINIL
     Dosage: 99.5 NG/KG/MIN, CONT
     Route: 042
  4. ADEMPAS [Concomitant]
     Active Substance: RIOCIGUAT
     Indication: Product used for unknown indication
     Dosage: UNK
     Route: 065
  5. WARFARIN [Concomitant]
     Active Substance: WARFARIN
     Indication: Product used for unknown indication
     Dosage: UNK
     Route: 065
  6. AMBRISENTAN [Concomitant]
     Active Substance: AMBRISENTAN
     Indication: Product used for unknown indication
     Dosage: UNK
     Route: 065
  7. LETAIRIS [Concomitant]
     Active Substance: AMBRISENTAN
     Indication: Product used for unknown indication
     Dosage: UNK
     Route: 065

REACTIONS (7)
  - Flank pain [Unknown]
  - Malaise [Unknown]
  - Hypokalaemia [Unknown]
  - Pneumonia [Unknown]
  - Infection [Unknown]
  - Vascular device infection [Unknown]
  - Vomiting [Unknown]
